FAERS Safety Report 8346608-2 (Version None)
Quarter: 2012Q2

REPORT INFORMATION
  Report Type: 
  Country: None (occurrence: None)
  Receive Date: 20120509
  Receipt Date: 20120504
  Transmission Date: 20120825
  Serious: Yes (Life-Threatening, Hospitalization)
  Sender: FDA-Public Use
  Company Number: PHHY2012CA037879

PATIENT
  Sex: Male

DRUGS (8)
  1. OLANZAPINE [Concomitant]
     Dosage: 20 UKN, QHS
  2. KEMADRIN [Concomitant]
     Dosage: 5 MG, TID
  3. FLURAZEPAM [Concomitant]
     Dosage: 30 UKN, QHS
  4. LIPITOR [Concomitant]
     Dosage: 20 UKN, DAILY
  5. SERTRALINE HYDROCHLORIDE [Concomitant]
     Dosage: 50 MG, AT DINNER
  6. ARTHROTEC [Concomitant]
     Dosage: 25/100 DAILY
  7. CLOZAPINE [Suspect]
     Indication: SCHIZOPHRENIA
     Dosage: 200 MG, TID
     Route: 048
     Dates: start: 19940101
  8. XANAX [Concomitant]
     Dosage: 0.5 UKN, BID

REACTIONS (2)
  - LYMPHOMA [None]
  - NEOPLASM MALIGNANT [None]
